FAERS Safety Report 18332395 (Version 1)
Quarter: 2020Q3

REPORT INFORMATION
  Report Type: Spontaneous
  Country: US (occurrence: US)
  Receive Date: 20200930
  Receipt Date: 20200930
  Transmission Date: 20201103
  Serious: No
  Sender: FDA-Public Use
  Company Number: US-GILEAD-2020-0496424

PATIENT
  Age: 5 Year
  Sex: Female

DRUGS (1)
  1. HARVONI [Suspect]
     Active Substance: LEDIPASVIR\SOFOSBUVIR
     Indication: PRODUCT USED FOR UNKNOWN INDICATION
     Dosage: 1 DOSAGE FORM (45/200 MG PEDIATRIC DOSE)
     Route: 065
     Dates: start: 2020

REACTIONS (4)
  - Wrong technique in product usage process [Unknown]
  - Product use complaint [Unknown]
  - Dysgeusia [Unknown]
  - Dysphagia [Unknown]

NARRATIVE: CASE EVENT DATE: 2020
